FAERS Safety Report 8085988 (Version 3)
Quarter: 2012Q4

REPORT INFORMATION
  Report Type: 
  Country: US (occurrence: US)
  Receive Date: 20110811
  Receipt Date: 20121003
  Transmission Date: 20130627
  Serious: Yes (Other)
  Sender: FDA-Public Use
  Company Number: US-ROCHE-794813

PATIENT
  Age: 26 Year
  Sex: Female
  Weight: 72.64 kg

DRUGS (1)
  1. ACCUTANE [Suspect]
     Indication: ACNE CYSTIC
     Route: 048
     Dates: start: 200203, end: 200209

REACTIONS (18)
  - Colitis ulcerative [Unknown]
  - Irritable bowel syndrome [Unknown]
  - Abdominal pain [Unknown]
  - Diarrhoea [Unknown]
  - Nausea [Unknown]
  - Decreased appetite [Unknown]
  - Fatigue [Unknown]
  - Pharyngitis [Unknown]
  - Sinusitis [Unknown]
  - Hypersensitivity [Unknown]
  - Chapped lips [Unknown]
  - Dry eye [Unknown]
  - Dry skin [Unknown]
  - Headache [Unknown]
  - Myalgia [Unknown]
  - Back pain [Unknown]
  - Inflammatory bowel disease [Unknown]
  - Nasal dryness [Unknown]
